FAERS Safety Report 8434999 (Version 3)
Quarter: 2019Q4

REPORT INFORMATION
  Report Type: Spontaneous
  Country: US (occurrence: US)
  Receive Date: 20120301
  Receipt Date: 20191115
  Transmission Date: 20200122
  Serious: Yes (Other)
  Sender: FDA-Public Use
  Company Number: US-SANOFI-AVENTIS-2012SA012383

PATIENT
  Age: 31 Year
  Sex: Female
  Weight: 79 kg

DRUGS (2)
  1. CEFIXIME. [Concomitant]
     Active Substance: CEFIXIME
     Indication: HYPERTENSION
     Dosage: UNK, UNK
     Route: 065
     Dates: start: 200611
  2. SELSUN BLUE [Suspect]
     Active Substance: SELENIUM SULFIDE
     Dosage: UNK UNK,BID
     Route: 061
     Dates: start: 20120216, end: 20120217

REACTIONS (6)
  - Dermatitis contact [Recovered/Resolved]
  - Burning sensation [Recovered/Resolved]
  - Pruritus [Unknown]
  - Blister [Recovered/Resolved]
  - Lymphadenopathy [Recovered/Resolved]
  - Eye swelling [Recovered/Resolved]

NARRATIVE: CASE EVENT DATE: 201202
